FAERS Safety Report 6851461-X (Version None)
Quarter: 2010Q3

REPORT INFORMATION
  Report Type: 
  Country: None (occurrence: None)
  Receive Date: 20100717
  Receipt Date: 20080118
  Transmission Date: 20110219
  Serious: No
  Sender: FDA-Public Use
  Company Number: US-PFIZER INC-2008007389

PATIENT
  Sex: Male
  Weight: 81.8 kg

DRUGS (6)
  1. CHANTIX [Suspect]
     Indication: SMOKING CESSATION THERAPY
     Route: 048
     Dates: start: 20080103, end: 20080117
  2. ACETYLSALICYLIC ACID [Concomitant]
  3. CRESTOR [Concomitant]
  4. PLAVIX [Concomitant]
  5. NITROGLYCERIN [Concomitant]
  6. ALL OTHER THERAPEUTIC PRODUCTS [Concomitant]

REACTIONS (1)
  - PRURITUS [None]
